FAERS Safety Report 8965620 (Version 1)
Quarter: 2012Q4

REPORT INFORMATION
  Report Type: Spontaneous
  Country: CN (occurrence: None)
  Receive Date: 20121205
  Receipt Date: 20121205
  Transmission Date: 20130627
  Serious: Yes (Hospitalization)
  Sender: FDA-Public Use
  Company Number: NSR_00727_2012

PATIENT
  Age: 33 Year
  Sex: Male

DRUGS (3)
  1. LAMOTRIGINE (LAMOTRIGINE) [Suspect]
     Indication: BIPOLAR DISORDER
     Dosage: (Not the prescribed amount), (DF)
(Unknown until not continuing), (Unknown)
  2. CLONAZEPAM [Suspect]
     Dosage: (Not the prescribed amount),  (DF)
(Unknown until not continuing), (Unknown)
  3. LITHIUM [Concomitant]

REACTIONS (7)
  - Loss of consciousness [None]
  - Dyspnoea [None]
  - Chills [None]
  - Sinus tachycardia [None]
  - Poisoning [None]
  - Blood pressure decreased [None]
  - Rales [None]
